FAERS Safety Report 8202779-X (Version None)
Quarter: 2012Q1

REPORT INFORMATION
  Report Type: 
  Country: None (occurrence: None)
  Receive Date: 20120312
  Receipt Date: 20120312
  Transmission Date: 20120608
  Serious: No
  Sender: FDA-Public Use
  Company Number: None

PATIENT
  Age: 56 Year
  Sex: Male
  Weight: 122 kg

DRUGS (2)
  1. PANTOPRAZOLE [Concomitant]
     Dosage: 40MG
     Route: 048
     Dates: start: 20120206, end: 20120303
  2. PANTOPRAZOLE [Suspect]
     Indication: GASTROOESOPHAGEAL REFLUX DISEASE
     Dosage: 40MG
     Route: 048
     Dates: start: 20120206, end: 20120303

REACTIONS (1)
  - RASH [None]
